FAERS Safety Report 9217257 (Version 1)
Quarter: 2013Q2

REPORT INFORMATION
  Report Type: Spontaneous
  Country: US (occurrence: None)
  Receive Date: 20130404
  Receipt Date: 20130404
  Transmission Date: 20140414
  Serious: Yes (Hospitalization)
  Sender: FDA-Public Use
  Company Number: 001502501A

PATIENT
  Age: 38 Year
  Sex: Female

DRUGS (1)
  1. MEANINGFUL BEAUTY ANTIOXIDANT DAY CREME SPF 20 [Suspect]
     Dosage: TWICE DAILY DERMAL
     Dates: start: 20130220, end: 20130302

REACTIONS (2)
  - Pruritus [None]
  - Urticaria [None]
